FAERS Safety Report 8133480-9 (Version None)
Quarter: 2012Q1

REPORT INFORMATION
  Report Type: 
  Country: None (occurrence: None)
  Receive Date: 20120213
  Receipt Date: 20120206
  Transmission Date: 20120608
  Serious: Yes (Other)
  Sender: FDA-Public Use
  Company Number: US-ALLERGAN-1201754US

PATIENT
  Age: 60 Year
  Sex: Female
  Weight: 63.492 kg

DRUGS (5)
  1. PROTONIX [Concomitant]
     Indication: DYSPEPSIA
     Route: 048
  2. FIOROCET WITH CODEINE [Concomitant]
     Indication: MIGRAINE
     Route: 048
  3. RELPAX [Concomitant]
     Indication: MIGRAINE
     Route: 048
  4. ATIVAN [Concomitant]
     Indication: ANXIETY
     Route: 048
  5. BOTULINUM TOXIN TYPE A [Suspect]
     Indication: MIGRAINE
     Dosage: UNK
     Route: 030
     Dates: start: 20120123, end: 20120123

REACTIONS (10)
  - MUSCULOSKELETAL PAIN [None]
  - INFLUENZA LIKE ILLNESS [None]
  - FATIGUE [None]
  - AGEUSIA [None]
  - DIZZINESS [None]
  - ABASIA [None]
  - PAIN IN EXTREMITY [None]
  - HEADACHE [None]
  - MUSCULAR WEAKNESS [None]
  - DECREASED APPETITE [None]
